FAERS Safety Report 7491993-7 (Version None)
Quarter: 2011Q2

REPORT INFORMATION
  Report Type: 
  Country: None (occurrence: None)
  Receive Date: 20110511
  Receipt Date: 20110426
  Transmission Date: 20111010
  Serious: Yes (Hospitalization)
  Sender: FDA-Public Use
  Company Number: B0717227A

PATIENT
  Age: 53 Year
  Sex: Male

DRUGS (1)
  1. DIGOXIN [Suspect]
     Indication: PRODUCT USED FOR UNKNOWN INDICATION

REACTIONS (13)
  - COUGH [None]
  - NAUSEA [None]
  - BRADYCARDIA [None]
  - ARRHYTHMIA [None]
  - CARDIOTOXICITY [None]
  - CHEST PAIN [None]
  - DYSPNOEA EXERTIONAL [None]
  - ELECTROCARDIOGRAM ST SEGMENT DEPRESSION [None]
  - OVERDOSE [None]
  - ABDOMINAL PAIN [None]
  - NODAL RHYTHM [None]
  - SUPRAVENTRICULAR TACHYCARDIA [None]
  - VENTRICULAR TACHYCARDIA [None]
